FAERS Safety Report 18663251 (Version 1)
Quarter: 2020Q4

REPORT INFORMATION
  Report Type: Spontaneous
  Country: CA (occurrence: CA)
  Receive Date: 20201224
  Receipt Date: 20201224
  Transmission Date: 20210114
  Serious: Yes (Hospitalization, Other)
  Sender: FDA-Public Use
  Company Number: CA-UNITED THERAPEUTICS-UNT-2020-020227

PATIENT
  Age: 75 Year
  Sex: Female

DRUGS (1)
  1. REMODULIN [Suspect]
     Active Substance: TREPROSTINIL
     Indication: PRODUCT USED FOR UNKNOWN INDICATION
     Dosage: UNK, CONTINUING
     Route: 058

REACTIONS (4)
  - Musculoskeletal chest pain [Not Recovered/Not Resolved]
  - Back disorder [Recovered/Resolved]
  - Fall [Recovered/Resolved with Sequelae]
  - Spinal fracture [Unknown]

NARRATIVE: CASE EVENT DATE: 202012
